FAERS Safety Report 26184531 (Version 1)
Quarter: 2025Q4

REPORT INFORMATION
  Report Type: Other
  Country: EU (occurrence: EU)
  Receive Date: 20251222
  Receipt Date: 20251222
  Transmission Date: 20260117
  Serious: Yes (Other)
  Sender: GLENMARK
  Company Number: None

PATIENT
  Age: 65 Year
  Sex: Male
  Weight: 63 kg

DRUGS (14)
  1. EZETIMIBE [Suspect]
     Active Substance: EZETIMIBE
     Indication: Coronary artery disease
     Dosage: 10 (UNITS UNSPECIFIED)
     Route: 048
     Dates: start: 20110401, end: 20220601
  2. ALIROCUMAB [Suspect]
     Active Substance: ALIROCUMAB
     Indication: Coronary artery disease
     Dosage: 150 (UNITS UNSPECIFIED)
     Route: 058
     Dates: start: 20230301, end: 20230901
  3. ATORVASTATIN [Suspect]
     Active Substance: ATORVASTATIN
     Indication: Arteriosclerosis
     Dosage: UNK
     Route: 048
  4. ATORVASTATIN [Suspect]
     Active Substance: ATORVASTATIN
     Indication: Coronary artery disease
  5. PRAVASTATIN [Suspect]
     Active Substance: PRAVASTATIN
     Indication: Arteriosclerosis
     Dosage: UNK
     Route: 048
  6. PRAVASTATIN [Suspect]
     Active Substance: PRAVASTATIN
     Indication: Coronary artery disease
  7. ROSUVASTATIN [Suspect]
     Active Substance: ROSUVASTATIN
     Indication: Arteriosclerosis
     Dosage: UNK
     Route: 065
  8. ROSUVASTATIN [Suspect]
     Active Substance: ROSUVASTATIN
     Indication: Coronary artery disease
  9. FLUVASTATIN [Suspect]
     Active Substance: FLUVASTATIN SODIUM
     Indication: Arteriosclerosis
     Dosage: UNK
     Route: 065
  10. FLUVASTATIN [Suspect]
     Active Substance: FLUVASTATIN SODIUM
     Indication: Coronary artery disease
  11. SIMVASTATIN [Suspect]
     Active Substance: SIMVASTATIN
     Indication: Arteriosclerosis
     Dosage: UNK
     Route: 048
  12. SIMVASTATIN [Suspect]
     Active Substance: SIMVASTATIN
     Indication: Coronary artery disease
  13. SIMVASTATIN [Suspect]
     Active Substance: SIMVASTATIN
     Indication: Infarction
  14. BEMPEDOIC ACID [Suspect]
     Active Substance: BEMPEDOIC ACID
     Indication: Coronary artery disease
     Dosage: UNK, 180
     Route: 065
     Dates: start: 20220401, end: 20220601

REACTIONS (2)
  - Necrotising myositis [Unknown]
  - Blood creatine phosphokinase increased [Recovered/Resolved]

NARRATIVE: CASE EVENT DATE: 20230101
